FAERS Safety Report 12575624 (Version 5)
Quarter: 2017Q1

REPORT INFORMATION
  Report Type: Spontaneous
  Country: US (occurrence: US)
  Receive Date: 20160720
  Receipt Date: 20170224
  Transmission Date: 20170428
  Serious: Yes (Hospitalization, Other)
  Sender: FDA-Public Use
  Company Number: US-PFIZER INC-2016344757

PATIENT
  Age: 69 Year
  Sex: Female

DRUGS (6)
  1. LEVOTHYROXIN [Concomitant]
     Active Substance: LEVOTHYROXINE
     Dosage: 112 UG, UNK
  2. ESTRADIOL. [Concomitant]
     Active Substance: ESTRADIOL
     Dosage: 0.025 WEEKLY
     Dates: start: 20120921
  3. ATORVASTATIN [Concomitant]
     Active Substance: ATORVASTATIN
     Dosage: 20 MG, UNK
  4. PRILOSEC OTC [Concomitant]
     Active Substance: OMEPRAZOLE MAGNESIUM
     Dosage: UNK
  5. XELJANZ [Suspect]
     Active Substance: TOFACITINIB CITRATE
     Indication: RHEUMATOID ARTHRITIS
     Dosage: 5 MG, 2X/DAY
     Dates: start: 20160504
  6. PREDNISONE. [Concomitant]
     Active Substance: PREDNISONE
     Dosage: 2 MG, UNK
     Dates: start: 20120322, end: 20160610

REACTIONS (3)
  - Bacterial infection [Not Recovered/Not Resolved]
  - Lung disorder [Unknown]
  - Pneumonia [Not Recovered/Not Resolved]

NARRATIVE: CASE EVENT DATE: 20160522
